FAERS Safety Report 18568578 (Version 1)
Quarter: 2020Q4

REPORT INFORMATION
  Report Type: Spontaneous
  Country: US (occurrence: US)
  Receive Date: 20201201
  Receipt Date: 20201201
  Transmission Date: 20210114
  Serious: Yes (Other)
  Sender: FDA-Public Use
  Company Number: None

PATIENT
  Age: 74 Year
  Sex: Female
  Weight: 72.6 kg

DRUGS (11)
  1. HYDROXYCHLOROQUINE [Concomitant]
     Active Substance: HYDROXYCHLOROQUINE
  2. DULOXETINE. [Concomitant]
     Active Substance: DULOXETINE
  3. PRAVASTATIN. [Concomitant]
     Active Substance: PRAVASTATIN
  4. MORPHINE [Concomitant]
     Active Substance: MORPHINE
  5. TRAZODONE [Concomitant]
     Active Substance: TRAZODONE HYDROCHLORIDE
  6. CEVIMELINE. [Concomitant]
     Active Substance: CEVIMELINE
  7. DENOSUMAB [Concomitant]
     Active Substance: DENOSUMAB
  8. ACEBUTOLOL [Concomitant]
     Active Substance: ACEBUTOLOL
  9. LEVOTHYROXINE. [Concomitant]
     Active Substance: LEVOTHYROXINE
  10. CYCLOBENZAPRINE. [Concomitant]
     Active Substance: CYCLOBENZAPRINE
  11. BAMLANIVIMAB. [Suspect]
     Active Substance: BAMLANIVIMAB
     Indication: COVID-19
     Dosage: ?          OTHER FREQUENCY:ONCE;?
     Route: 041

REACTIONS (3)
  - Heart rate increased [None]
  - Atrial flutter [None]
  - Cardiac fibrillation [None]

NARRATIVE: CASE EVENT DATE: 20201125
